FAERS Safety Report 4591414-8 (Version None)
Quarter: 2005Q1

REPORT INFORMATION
  Report Type: 
  Country: None (occurrence: None)
  Receive Date: 20050225
  Receipt Date: 20050216
  Transmission Date: 20050727
  Serious: Yes (Hospitalization)
  Sender: FDA-Public Use
  Company Number: JP-BRISTOL-MYERS SQUIBB COMPANY-12874368

PATIENT
  Age: 61 Year
  Sex: Female

DRUGS (4)
  1. SINEMET [Suspect]
     Indication: PARKINSON'S DISEASE
     Dates: start: 19970101
  2. PERGOLIDE MESYLATE [Suspect]
     Route: 048
  3. CABERGOLINE [Concomitant]
     Dates: start: 20040625
  4. SELEGILINE HCL [Concomitant]

REACTIONS (2)
  - DRUG EFFECT DECREASED [None]
  - SLEEP ATTACKS [None]
